FAERS Safety Report 14769015 (Version 1)
Quarter: 2018Q2

REPORT INFORMATION
  Report Type: Spontaneous
  Country: FR (occurrence: FR)
  Receive Date: 20180417
  Receipt Date: 20180417
  Transmission Date: 20180711
  Serious: Yes (Hospitalization)
  Sender: FDA-Public Use
  Company Number: FR-JNJFOC-20180418025

PATIENT
  Age: 65 Year
  Sex: Female

DRUGS (1)
  1. YONDELIS [Suspect]
     Active Substance: TRABECTEDIN
     Indication: OVARIAN CANCER RECURRENT
     Route: 042
     Dates: start: 20151016, end: 20151016

REACTIONS (2)
  - Hepatocellular injury [Recovering/Resolving]
  - Subileus [Recovering/Resolving]

NARRATIVE: CASE EVENT DATE: 20151020
